FAERS Safety Report 18321734 (Version 2)
Quarter: 2020Q4

REPORT INFORMATION
  Report Type: Report from Study
  Country: None (occurrence: US)
  Receive Date: 20200929
  Receipt Date: 20201002
  Transmission Date: 20210113
  Serious: Yes (Hospitalization)
  Sender: FDA-Public Use
  Company Number: US-ABBVIE-20K-163-3581085-00

PATIENT
  Age: 83 Year
  Sex: Male

DRUGS (2)
  1. VENCLEXTA [Suspect]
     Active Substance: VENETOCLAX
     Dosage: TAKE 3 TABLETS BY MOUTH ONCE DAILY WITH MEAL AND WATER
     Route: 048
  2. VENCLEXTA [Suspect]
     Active Substance: VENETOCLAX
     Indication: CHRONIC LYMPHOCYTIC LEUKAEMIA (IN REMISSION)
     Route: 048

REACTIONS (13)
  - Nausea [Not Recovered/Not Resolved]
  - Fluid intake reduced [Unknown]
  - Muscular weakness [Unknown]
  - Musculoskeletal pain [Not Recovered/Not Resolved]
  - Gait inability [Unknown]
  - Back pain [Unknown]
  - Diarrhoea [Unknown]
  - Abdominal pain [Not Recovered/Not Resolved]
  - Asthenia [Not Recovered/Not Resolved]
  - Weight decreased [Not Recovered/Not Resolved]
  - Constipation [Unknown]
  - Impaired quality of life [Unknown]
  - Hypophagia [Unknown]

NARRATIVE: CASE EVENT DATE: 202008
